FAERS Safety Report 6800108-7 (Version None)
Quarter: 2010Q2

REPORT INFORMATION
  Report Type: 
  Country: None (occurrence: None)
  Receive Date: 20100617
  Receipt Date: 20100607
  Transmission Date: 20101027
  Serious: Yes (Hospitalization)
  Sender: FDA-Public Use
  Company Number: WAES 1005USA01351

PATIENT
  Age: 54 Year
  Sex: Female
  Weight: 76.2043 kg

DRUGS (8)
  1. ZOCOR [Suspect]
     Indication: ACUTE CORONARY SYNDROME
     Dosage: PO
     Route: 048
     Dates: start: 20090723
  2. PLACEBO (UNSPECIFIED) UNK [Suspect]
     Indication: ACUTE CORONARY SYNDROME
     Dosage: PO
     Route: 048
     Dates: start: 20090723
  3. CYMBALTA [Concomitant]
  4. PLAVIX [Concomitant]
  5. SEROQUEL [Concomitant]
  6. ASPIRIN [Concomitant]
  7. LISINOPRIL [Concomitant]
  8. METOPROLOL TARTRATE [Concomitant]

REACTIONS (7)
  - ABSCESS [None]
  - CAECITIS [None]
  - COLITIS ISCHAEMIC [None]
  - DIVERTICULUM INTESTINAL [None]
  - HAEMANGIOMA OF LIVER [None]
  - HEPATIC MASS [None]
  - LARGE INTESTINAL ULCER [None]
